FAERS Safety Report 13207310 (Version 2)
Quarter: 2017Q2

REPORT INFORMATION
  Report Type: Spontaneous
  Country: US (occurrence: US)
  Receive Date: 20170209
  Receipt Date: 20170503
  Transmission Date: 20170830
  Serious: No
  Sender: FDA-Public Use
  Company Number: US-SA-2016SA236767

PATIENT
  Age: 55 Year
  Sex: Female
  Weight: 63.5 kg

DRUGS (15)
  1. PRALUENT [Suspect]
     Active Substance: ALIROCUMAB
     Indication: HYPERLIPIDAEMIA
     Dosage: ROUTE- UNDER THE SKIN
     Route: 058
     Dates: start: 201611, end: 201703
  2. ALIROCUMAB PREFILLED PEN [Concomitant]
     Active Substance: ALIROCUMAB
     Indication: LOW DENSITY LIPOPROTEIN
     Dates: start: 201611, end: 201703
  3. OMEGA 3 [Concomitant]
     Active Substance: OMEGA-3 FATTY ACIDS
  4. NIACIN. [Concomitant]
     Active Substance: NIACIN
  5. ASPIRIN. [Concomitant]
     Active Substance: ASPIRIN
  6. PRALUENT [Suspect]
     Active Substance: ALIROCUMAB
     Indication: LOW DENSITY LIPOPROTEIN
     Dosage: ROUTE- UNDER THE SKIN
     Route: 058
     Dates: start: 201611, end: 201703
  7. METOPROLOL. [Concomitant]
     Active Substance: METOPROLOL
  8. PRALUENT [Suspect]
     Active Substance: ALIROCUMAB
     Indication: LOW DENSITY LIPOPROTEIN
     Dosage: ROUTE- UNDER THE SKIN
     Route: 058
     Dates: start: 201611, end: 201703
  9. RANEXA [Concomitant]
     Active Substance: RANOLAZINE
  10. PRALUENT [Suspect]
     Active Substance: ALIROCUMAB
     Indication: HYPERLIPIDAEMIA
     Dosage: ROUTE- UNDER THE SKIN
     Route: 058
     Dates: start: 201611, end: 201703
  11. ALIROCUMAB PREFILLED PEN [Concomitant]
     Active Substance: ALIROCUMAB
     Indication: HYPERLIPIDAEMIA
     Dates: start: 201611, end: 201703
  12. PROLIA [Concomitant]
     Active Substance: DENOSUMAB
     Dosage: 1 ML PFS DOSE:60 MILLIGRAM(S)/MILLILITRE
  13. ZETIA [Concomitant]
     Active Substance: EZETIMIBE
  14. LIVALO [Concomitant]
     Active Substance: PITAVASTATIN CALCIUM
  15. COENZYME Q10 [Concomitant]
     Active Substance: UBIDECARENONE

REACTIONS (10)
  - Arthralgia [Unknown]
  - Back pain [Unknown]
  - Chills [Not Recovered/Not Resolved]
  - Low density lipoprotein increased [Unknown]
  - Condition aggravated [Unknown]
  - Influenza like illness [Not Recovered/Not Resolved]
  - Pain [Not Recovered/Not Resolved]
  - Chest pain [Unknown]
  - Insomnia [Not Recovered/Not Resolved]
  - Nasal congestion [Not Recovered/Not Resolved]

NARRATIVE: CASE EVENT DATE: 201611
